FAERS Safety Report 15939934 (Version 7)
Quarter: 2019Q2

REPORT INFORMATION
  Report Type: Report from Study
  Country: US (occurrence: US)
  Receive Date: 20190208
  Receipt Date: 20190625
  Transmission Date: 20190711
  Serious: Yes (Death, Hospitalization)
  Sender: FDA-Public Use
  Company Number: US-ROCHE-2222580

PATIENT
  Age: 68 Year
  Sex: Male
  Weight: 53.1 kg

DRUGS (33)
  1. PROTONIX [Concomitant]
     Active Substance: PANTOPRAZOLE SODIUM
     Route: 065
     Dates: start: 20181126, end: 20181126
  2. SODIUM CHLORIDE. [Concomitant]
     Active Substance: SODIUM CHLORIDE
     Route: 065
     Dates: start: 20181128, end: 20181128
  3. TYLENOL [Concomitant]
     Active Substance: ACETAMINOPHEN
     Indication: PAIN
     Route: 065
     Dates: start: 20181126, end: 20181203
  4. ACTIGALL [Concomitant]
     Active Substance: URSODIOL
     Indication: LIVER DISORDER
     Route: 065
     Dates: start: 20181201, end: 20181203
  5. ALDACTONE [Concomitant]
     Active Substance: SPIRONOLACTONE
     Route: 065
     Dates: start: 20181129, end: 20181129
  6. GLUCAGON HYDROCHLORIDE [Concomitant]
     Active Substance: GLUCAGON HYDROCHLORIDE
     Indication: DIABETES MELLITUS
     Route: 065
     Dates: start: 20181127, end: 20181203
  7. BEVACIZUMAB. [Suspect]
     Active Substance: BEVACIZUMAB
     Indication: HEPATOCELLULAR CARCINOMA
     Dosage: ON 09/NOV/2018, HE RECEIVED HER MOST RECENT DOSE (868 MG) OF BEVACIZUMAB PRIOR TO AE AND SAE ONSET
     Route: 042
     Dates: start: 20180618
  8. KAYEXALATE [Concomitant]
     Active Substance: SODIUM POLYSTYRENE SULFONATE
     Indication: HYPERKALAEMIA
     Route: 065
     Dates: start: 20181130, end: 20181203
  9. FENTANYL. [Concomitant]
     Active Substance: FENTANYL
     Route: 065
     Dates: start: 20181128, end: 20181128
  10. DEXTROSE. [Concomitant]
     Active Substance: DEXTROSE
     Route: 065
     Dates: start: 20181126, end: 20181203
  11. HEPARIN SODIUM. [Concomitant]
     Active Substance: HEPARIN SODIUM
     Indication: THROMBOSIS
     Dosage: 5000 UNITS
     Route: 065
     Dates: start: 20181201, end: 20181203
  12. LASIX [Concomitant]
     Active Substance: FUROSEMIDE
     Route: 065
     Dates: start: 20181129, end: 20181129
  13. PROTONIX [Concomitant]
     Active Substance: PANTOPRAZOLE SODIUM
     Indication: GASTROOESOPHAGEAL REFLUX DISEASE
     Route: 065
     Dates: start: 20181129, end: 20181203
  14. DEXTROSE. [Concomitant]
     Active Substance: DEXTROSE
     Route: 065
     Dates: start: 20181126, end: 20181203
  15. DEXTROSE. [Concomitant]
     Active Substance: DEXTROSE
     Route: 065
     Dates: start: 20181126, end: 20181203
  16. ATEZOLIZUMAB. [Suspect]
     Active Substance: ATEZOLIZUMAB
     Indication: HEPATOCELLULAR CARCINOMA
     Dosage: DATE OF MOST RECENT DOSE OF ATEZOLIZUMAB PRIOR TO THE ONSET OF EVENTS: 09/NOV/2018 (1200 MG)
     Route: 042
     Dates: start: 20180618
  17. AMLODIPINE [Concomitant]
     Active Substance: AMLODIPINE BESYLATE
     Indication: HYPERTENSION
     Route: 065
     Dates: start: 20180525
  18. SODIUM CHLORIDE. [Concomitant]
     Active Substance: SODIUM CHLORIDE
     Route: 065
     Dates: start: 20181126, end: 20181128
  19. HEPARIN SODIUM. [Concomitant]
     Active Substance: HEPARIN SODIUM
     Dosage: 25000 UNITS IN 250 ML 0.45% NORMAL SALINE PREMIX INFUSION
     Route: 065
     Dates: start: 20181129, end: 20181130
  20. LASIX [Concomitant]
     Active Substance: FUROSEMIDE
     Indication: OEDEMA
     Route: 065
     Dates: start: 20181129, end: 20181203
  21. SOLU-MEDROL [Concomitant]
     Active Substance: METHYLPREDNISOLONE SODIUM SUCCINATE
     Indication: INFLAMMATION
     Route: 042
     Dates: start: 20181129, end: 20181203
  22. DEXTROSE;SODIUM CHLORIDE [Concomitant]
     Dosage: 5% - 0.45%
     Route: 065
     Dates: start: 20181127, end: 20181127
  23. ZOFRAN [Concomitant]
     Active Substance: ONDANSETRON HYDROCHLORIDE
     Route: 065
     Dates: start: 20181126, end: 20181203
  24. CIPRO [Concomitant]
     Active Substance: CIPROFLOXACIN HYDROCHLORIDE
     Indication: INFECTION
     Route: 065
     Dates: start: 20181129, end: 20181129
  25. VERSED [Concomitant]
     Active Substance: MIDAZOLAM HYDROCHLORIDE
     Route: 065
     Dates: start: 20181128, end: 20181128
  26. ALDACTONE [Concomitant]
     Active Substance: SPIRONOLACTONE
     Route: 065
     Dates: start: 20181128, end: 20181128
  27. DEXTROSE. [Concomitant]
     Active Substance: DEXTROSE
     Route: 065
     Dates: start: 20181126, end: 20181203
  28. DEXTROSE;SODIUM CHLORIDE [Concomitant]
     Dosage: 5% - 0.9%
     Route: 065
     Dates: start: 20181127, end: 20181128
  29. ROCEPHIN [Concomitant]
     Active Substance: CEFTRIAXONE SODIUM
     Indication: INFECTION
     Route: 065
     Dates: start: 20181126, end: 20181126
  30. LASIX [Concomitant]
     Active Substance: FUROSEMIDE
     Route: 065
     Dates: start: 20181128, end: 20181129
  31. SANDOSTATIN [Concomitant]
     Active Substance: OCTREOTIDE ACETATE
     Indication: DIARRHOEA
     Dosage: IN 0.9% SODIUM CHLORIDE 250 ML
     Route: 065
     Dates: start: 20181126, end: 20181128
  32. TYLENOL [Concomitant]
     Active Substance: ACETAMINOPHEN
     Indication: PYREXIA
  33. ZOFRAN [Concomitant]
     Active Substance: ONDANSETRON HYDROCHLORIDE
     Indication: NAUSEA
     Route: 065
     Dates: start: 20181126, end: 20181203

REACTIONS (2)
  - Blood bilirubin increased [Recovered/Resolved]
  - Gastrointestinal haemorrhage [Not Recovered/Not Resolved]

NARRATIVE: CASE EVENT DATE: 20181006
